FAERS Safety Report 7229045 (Version 6)
Quarter: 2014Q2

REPORT INFORMATION
  Report Type: Spontaneous
  Country: GB (occurrence: GB)
  Receive Date: 20091223
  Receipt Date: 20140530
  Transmission Date: 20141212
  Serious: Yes (Other)
  Sender: FDA-Public Use
  Company Number: GB-JNJFOC-20090908736

PATIENT
  Age: 42 Year
  Sex: Female
  Weight: 74 kg

DRUGS (12)
  1. PREZISTA [Suspect]
     Indication: HIV INFECTION
     Route: 048
     Dates: start: 20081023
  2. INTELENCE [Suspect]
     Indication: HIV INFECTION
     Route: 048
     Dates: start: 20081023
  3. ISENTRESS [Suspect]
     Indication: HIV INFECTION
     Route: 048
     Dates: start: 20081023
  4. NORVIR [Suspect]
     Indication: HIV INFECTION
     Route: 048
     Dates: start: 20081023
  5. NORVIR [Suspect]
     Indication: HIV INFECTION
     Route: 048
     Dates: start: 20060905, end: 20081022
  6. TRUVADA [Suspect]
     Indication: HIV INFECTION
     Route: 048
     Dates: start: 20060905, end: 20081023
  7. APTIVUS [Suspect]
     Indication: HIV INFECTION
     Route: 048
     Dates: start: 20060905, end: 20081023
  8. AZIDOTHYMIDINE [Concomitant]
     Route: 042
  9. NOVORAPID [Concomitant]
     Indication: GESTATIONAL DIABETES
     Route: 058
     Dates: end: 20091022
  10. PREDNISOLONE [Concomitant]
     Indication: PRODUCT USED FOR UNKNOWN INDICATION
     Route: 065
  11. NITROUS OXIDE [Concomitant]
     Route: 065
  12. OXYGEN [Concomitant]
     Route: 065

REACTIONS (4)
  - Premature labour [Recovered/Resolved]
  - Drug-induced liver injury [Unknown]
  - Lipodystrophy acquired [Recovered/Resolved]
  - Exposure during pregnancy [Recovered/Resolved]
